FAERS Safety Report 13965656 (Version 1)
Quarter: 2017Q3

REPORT INFORMATION
  Report Type: Spontaneous
  Country: GB (occurrence: GB)
  Receive Date: 20170913
  Receipt Date: 20170913
  Transmission Date: 20171128
  Serious: Yes (Death, Other)
  Sender: FDA-Public Use
  Company Number: GB-PFIZER INC-2017394168

PATIENT
  Age: 58 Year
  Sex: Male
  Weight: 114 kg

DRUGS (1)
  1. FRAGMIN [Suspect]
     Active Substance: DALTEPARIN SODIUM
     Indication: DEEP VEIN THROMBOSIS
     Dosage: 18000 IU, 1X/DAY
     Route: 058
     Dates: start: 201701

REACTIONS (3)
  - Nephrosclerosis [Not Recovered/Not Resolved]
  - Renal haemorrhage [Fatal]
  - Renal pain [Not Recovered/Not Resolved]
